FAERS Safety Report 10469671 (Version 2)
Quarter: 2014Q3

REPORT INFORMATION
  Report Type: Spontaneous
  Country: US (occurrence: US)
  Receive Date: 20140923
  Receipt Date: 20140924
  Transmission Date: 20150326
  Serious: No
  Sender: FDA-Public Use
  Company Number: US-PFIZER INC-2014257927

PATIENT
  Age: 61 Year
  Sex: Male

DRUGS (3)
  1. SUTENT [Suspect]
     Active Substance: SUNITINIB MALATE
     Dosage: 50 MG, 1X/DAY (BY TAKING 2 CAPSULES OF 25 MG EACH TOGETHER)
     Route: 048
     Dates: start: 201407, end: 2014
  2. SUTENT [Suspect]
     Active Substance: SUNITINIB MALATE
     Indication: BRAIN CANCER METASTATIC
     Dosage: 50 MG, 1X/DAY
     Route: 048
     Dates: start: 201310, end: 2014
  3. SUTENT [Suspect]
     Active Substance: SUNITINIB MALATE
     Dosage: 25 MG, 1X/DAY
     Route: 048
     Dates: start: 2014, end: 201407

REACTIONS (3)
  - Disease progression [Unknown]
  - Brain cancer metastatic [Unknown]
  - Off label use [Unknown]

NARRATIVE: CASE EVENT DATE: 201310
